APPROVED DRUG PRODUCT: DORZOLAMIDE HYDROCHLORIDE
Active Ingredient: DORZOLAMIDE HYDROCHLORIDE
Strength: EQ 2% BASE
Dosage Form/Route: SOLUTION/DROPS;OPHTHALMIC
Application: A204778 | Product #001 | TE Code: AT
Applicant: MICRO LABS LTD
Approved: Nov 8, 2019 | RLD: No | RS: Yes | Type: RX